FAERS Safety Report 7584271-9 (Version None)
Quarter: 2011Q2

REPORT INFORMATION
  Report Type: 
  Country: None (occurrence: None)
  Receive Date: 20110531
  Receipt Date: 20100409
  Transmission Date: 20111010
  Serious: Yes (Hospitalization, Disabling, Other)
  Sender: FDA-Public Use
  Company Number: WAES 1002USA03786

PATIENT
  Age: 52 Year
  Sex: Female

DRUGS (4)
  1. SIMVASTATIN [Concomitant]
  2. METOPROLOL TARTRATE [Concomitant]
  3. JANUMET [Suspect]
     Indication: TYPE 2 DIABETES MELLITUS
     Dosage: 1000MG/50 MG/BID/PO
     Route: 048
     Dates: start: 20100101
  4. INSULIN [Concomitant]

REACTIONS (1)
  - PANCREATITIS [None]
